FAERS Safety Report 10661022 (Version 6)
Quarter: 2015Q1

REPORT INFORMATION
  Report Type: Report from Study
  Country: CA (occurrence: CA)
  Receive Date: 20141218
  Receipt Date: 20150206
  Transmission Date: 20150720
  Serious: Yes (Hospitalization, Other)
  Sender: FDA-Public Use
  Company Number: CA-ROCHE-1510217

PATIENT
  Age: 80 Year
  Sex: Female
  Weight: 63.63 kg

DRUGS (1)
  1. RITUXAN [Suspect]
     Active Substance: RITUXIMAB
     Indication: MYASTHENIA GRAVIS
     Dosage: DOSAGE UNKNOWN
     Route: 042
     Dates: start: 2009

REACTIONS (7)
  - Wound necrosis [Recovered/Resolved]
  - Off label use [Unknown]
  - Wound infection [Recovered/Resolved]
  - Myasthenia gravis [Recovered/Resolved]
  - Infusion related reaction [Unknown]
  - Dysphagia [Unknown]
  - Wound [Recovered/Resolved]

NARRATIVE: CASE EVENT DATE: 2014
